FAERS Safety Report 11658099 (Version 3)
Quarter: 2016Q1

REPORT INFORMATION
  Report Type: Spontaneous
  Country: KR (occurrence: KR)
  Receive Date: 20151024
  Receipt Date: 20160220
  Transmission Date: 20160525
  Serious: Yes (Hospitalization)
  Sender: FDA-Public Use
  Company Number: KR-AMGEN-KORCT2015112070

PATIENT
  Age: 74 Year
  Sex: Male
  Weight: 63.6 kg

DRUGS (18)
  1. G-LASTA [Suspect]
     Active Substance: PEGFILGRASTIM
     Dosage: 6 MG, Q3WK
     Route: 058
     Dates: start: 20150905
  2. PREDNISOLONE. [Concomitant]
     Active Substance: PREDNISOLONE
     Dosage: 60 MG, UNK
     Route: 048
     Dates: start: 20151001, end: 20151001
  3. RITUXIMAB [Concomitant]
     Active Substance: RITUXIMAB
     Dosage: 626.25 MG, UNK
     Route: 042
     Dates: start: 20150904, end: 20150904
  4. PREDNISOLONE. [Concomitant]
     Active Substance: PREDNISOLONE
     Dosage: 60 MG, UNK
     Route: 048
     Dates: start: 20150814, end: 20150814
  5. RITUXIMAB [Concomitant]
     Active Substance: RITUXIMAB
     Dosage: 626.25 MG, UNK
     Route: 042
     Dates: start: 20151001, end: 20151001
  6. CYCLOPHOSPHAMIDE. [Concomitant]
     Active Substance: CYCLOPHOSPHAMIDE
     Dosage: 933.75 MG, UNK
     Route: 042
     Dates: start: 20150814, end: 20150814
  7. VINCRISTINE [Concomitant]
     Active Substance: VINCRISTINE
     Dosage: 2 MG, UNK
     Route: 042
     Dates: start: 20150814, end: 20150814
  8. DOXORUBICIN [Concomitant]
     Active Substance: DOXORUBICIN
     Dosage: 62.63 MG, UNK
     Route: 042
     Dates: start: 20151001, end: 20151001
  9. VINCRISTINE [Concomitant]
     Active Substance: VINCRISTINE
     Dosage: 2 MG, UNK
     Route: 042
     Dates: start: 20151001, end: 20151001
  10. G-LASTA [Suspect]
     Active Substance: PEGFILGRASTIM
     Dosage: 6 MG, Q3WK
     Route: 058
     Dates: start: 20151002
  11. RITUXIMAB [Concomitant]
     Active Substance: RITUXIMAB
     Dosage: 622.5 MG, UNK
     Route: 042
     Dates: start: 20150814, end: 20150814
  12. CYCLOPHOSPHAMIDE. [Concomitant]
     Active Substance: CYCLOPHOSPHAMIDE
     Dosage: 939.38 MG, UNK
     Route: 042
     Dates: start: 20150904, end: 20150904
  13. DOXORUBICIN [Concomitant]
     Active Substance: DOXORUBICIN
     Dosage: 62.25 MG, UNK
     Route: 042
     Dates: start: 20150814, end: 20150814
  14. DOXORUBICIN [Concomitant]
     Active Substance: DOXORUBICIN
     Dosage: 62.63 MG, UNK
     Route: 042
     Dates: start: 20150904, end: 20150904
  15. G-LASTA [Suspect]
     Active Substance: PEGFILGRASTIM
     Indication: FEBRILE NEUTROPENIA
     Dosage: 6 MG, Q3WK
     Route: 058
     Dates: start: 20150815
  16. CYCLOPHOSPHAMIDE. [Concomitant]
     Active Substance: CYCLOPHOSPHAMIDE
     Dosage: 939.38 MG, UNK
     Route: 042
     Dates: start: 20151001, end: 20151001
  17. VINCRISTINE [Concomitant]
     Active Substance: VINCRISTINE
     Dosage: 2 MG, UNK
     Route: 042
     Dates: start: 20150904, end: 20150904
  18. PREDNISOLONE. [Concomitant]
     Active Substance: PREDNISOLONE
     Dosage: 60 MG, UNK
     Route: 048
     Dates: start: 20150904, end: 20150904

REACTIONS (1)
  - Febrile neutropenia [Recovered/Resolved]

NARRATIVE: CASE EVENT DATE: 20151008
